FAERS Safety Report 8428306 (Version 5)
Quarter: 2013Q1

REPORT INFORMATION
  Report Type: Report from Study
  Country: GB (occurrence: GB)
  Receive Date: 20120227
  Receipt Date: 20130204
  Transmission Date: 20140127
  Serious: Yes (Hospitalization)
  Sender: FDA-Public Use
  Company Number: GB-JNJFOC-20120207003

PATIENT
  Age: 68 Year
  Sex: Female
  Weight: 68.7 kg

DRUGS (6)
  1. ABIRATERONE ACETATE [Suspect]
     Indication: BREAST CANCER METASTATIC
     Dosage: CYCLE 3 (DAY 1-28 OF 28 DAY CYCLE)
     Route: 048
     Dates: end: 20120203
  2. ABIRATERONE ACETATE [Suspect]
     Indication: BREAST CANCER METASTATIC
     Dosage: CYCLE 1 (DAY 1-28 OF 28 DAY CYCLE)
     Route: 048
     Dates: start: 20111130
  3. ABIRATERONE ACETATE [Suspect]
     Indication: BREAST CANCER METASTATIC
     Dosage: THERAPY RESTARTED
     Route: 048
     Dates: start: 20120216
  4. RIFAMPICIN [Interacting]
     Indication: TUBERCULOSIS
     Route: 048
     Dates: start: 20120207
  5. RIFAMPICIN [Interacting]
     Indication: TUBERCULOSIS
     Route: 048
     Dates: start: 20120127, end: 20120129
  6. ETHAMBUTOL [Interacting]
     Indication: TUBERCULOSIS
     Route: 048
     Dates: start: 20120127, end: 20120129

REACTIONS (5)
  - Drug interaction [Recovered/Resolved]
  - Confusional state [Recovered/Resolved]
  - Dyspnoea [Recovered/Resolved]
  - Muscular weakness [Recovered/Resolved]
  - Coordination abnormal [Recovered/Resolved]
